FAERS Safety Report 6448259-3 (Version None)
Quarter: 2009Q4

REPORT INFORMATION
  Report Type: 
  Country: None (occurrence: None)
  Receive Date: 20091117
  Receipt Date: 20091028
  Transmission Date: 20100525
  Serious: Yes (Hospitalization)
  Sender: FDA-Public Use
  Company Number: JPI-P-009117

PATIENT
  Age: 68 Year
  Sex: Male

DRUGS (4)
  1. FLUVOXAMINE MALEATE [Suspect]
     Indication: DEPRESSION
     Dosage: 100 MG (100 MG, 1 IN 1 D), ORAL; 100 MG (50 MG, 2 IN 1 D), ORAL
     Route: 048
     Dates: start: 20090605, end: 20090909
  2. CARVEDILOL [Concomitant]
  3. ALPRAZOLAM [Concomitant]
  4. ZOLPIDEM [Concomitant]

REACTIONS (9)
  - ABDOMINAL DISCOMFORT [None]
  - DUODENITIS [None]
  - FLATULENCE [None]
  - FREQUENT BOWEL MOVEMENTS [None]
  - GASTRITIS [None]
  - GASTROINTESTINAL DISORDER [None]
  - HAEMATOCHEZIA [None]
  - MELAENA [None]
  - OESOPHAGITIS [None]
